FAERS Safety Report 6495346-X (Version None)
Quarter: 2009Q4

REPORT INFORMATION
  Report Type: 
  Country: None (occurrence: None)
  Receive Date: 20091214
  Receipt Date: 20090605
  Transmission Date: 20100525
  Serious: No
  Sender: FDA-Public Use
  Company Number: US-BRISTOL-MYERS SQUIBB COMPANY-14650907

PATIENT
  Age: 60 Year
  Sex: Female
  Weight: 66 kg

DRUGS (11)
  1. ABILIFY [Suspect]
     Indication: BIPOLAR I DISORDER
     Dates: start: 20090101
  2. ACTOS [Concomitant]
  3. NABUMETONE [Concomitant]
  4. HYDROCHLOROTHIAZIDE [Concomitant]
  5. SULINDAC [Concomitant]
  6. HYOMAX-SR [Concomitant]
  7. HYDROXYZINE [Concomitant]
  8. DEPAKOTE [Concomitant]
  9. POTASSIUM [Concomitant]
  10. MELOXICAM [Concomitant]
  11. HYDROCODONE [Concomitant]

REACTIONS (7)
  - ABDOMINAL DISCOMFORT [None]
  - DYSPNOEA [None]
  - HEADACHE [None]
  - MUSCULOSKELETAL STIFFNESS [None]
  - RASH [None]
  - READING DISORDER [None]
  - SPEECH DISORDER [None]
